FAERS Safety Report 5982613-9 (Version None)
Quarter: 2008Q4

REPORT INFORMATION
  Report Type: 
  Country: None (occurrence: None)
  Receive Date: 20081208
  Receipt Date: 20081203
  Transmission Date: 20090506
  Serious: Yes (Death)
  Sender: FDA-Public Use
  Company Number: PHHY2008BR30641

PATIENT
  Age: 78 Year
  Sex: Female

DRUGS (8)
  1. DIOVAN [Suspect]
     Indication: CARDIAC FAILURE
     Dosage: UNK DF, UNK
     Route: 048
     Dates: end: 20081108
  2. ALDACTONE [Concomitant]
     Indication: CARDIOMYOPATHY
     Dosage: 1 DF, QD
     Dates: end: 20081108
  3. DIGOXIN [Concomitant]
     Indication: CARDIOMYOPATHY
     Dosage: 1 DF, QD
     Route: 048
     Dates: end: 20081108
  4. CARVEDILOL [Concomitant]
     Indication: CARDIOMYOPATHY
     Dosage: 1 DF, BID
     Route: 048
     Dates: end: 20081108
  5. ACETYLSALICYLIC ACID SRT [Concomitant]
     Indication: CARDIOMYOPATHY
     Dosage: 1 DF, QD
     Route: 048
     Dates: end: 20081108
  6. ALLOPURINOL [Concomitant]
     Indication: CARDIOMYOPATHY
     Dosage: 1 DF, QD
     Route: 048
     Dates: end: 20081108
  7. OMEPRAZOLE [Concomitant]
     Indication: GASTRIC DISORDER
     Dosage: 1 DF, QD
     Route: 048
     Dates: end: 20081108
  8. FRONTAL [Concomitant]
     Indication: AGITATION
     Dosage: 1 DF, QD
     Route: 048

REACTIONS (2)
  - ARRHYTHMIA [None]
  - CARDIAC ARREST [None]
